FAERS Safety Report 12714024 (Version 2)
Quarter: 2017Q2

REPORT INFORMATION
  Report Type: Report from Study
  Country: US (occurrence: US)
  Receive Date: 20160905
  Receipt Date: 20170507
  Transmission Date: 20170830
  Serious: Yes (Other)
  Sender: FDA-Public Use
  Company Number: US-ROCHE-1609454

PATIENT
  Age: 70 Year
  Sex: Female
  Weight: 84 kg

DRUGS (6)
  1. BEVACIZUMAB [Suspect]
     Active Substance: BEVACIZUMAB
     Route: 042
     Dates: end: 20160717
  2. BEVACIZUMAB [Suspect]
     Active Substance: BEVACIZUMAB
     Dosage: ON DAY 1 OF CYCLES 1-4?COURSE 1
     Route: 042
     Dates: start: 20150410
  3. IPILIMUMAB [Suspect]
     Active Substance: IPILIMUMAB
     Indication: MALIGNANT MELANOMA
     Dosage: LAST DOSE PRIOR TO SAE ON 01/MAY/2015?COURSE 2
     Route: 042
     Dates: start: 20150501, end: 20150501
  4. BEVACIZUMAB [Suspect]
     Active Substance: BEVACIZUMAB
     Indication: MALIGNANT MELANOMA
     Dosage: COURSE 2?LAST DOSE PRIOR TO SAE ON 01/MAY/2015
     Route: 042
     Dates: start: 20150105, end: 20150105
  5. IPILIMUMAB [Suspect]
     Active Substance: IPILIMUMAB
     Route: 042
     Dates: end: 20160717
  6. IPILIMUMAB [Suspect]
     Active Substance: IPILIMUMAB
     Dosage: ON DAY 1 OF CYCLES 1-4?COURSE 1
     Route: 042
     Dates: start: 20150410

REACTIONS (8)
  - Hypertension [Unknown]
  - Skin ulcer [Unknown]
  - Embolism [Unknown]
  - Colitis [Unknown]
  - Cough [Unknown]
  - Hypertension [Unknown]
  - Large intestine perforation [Unknown]
  - Diarrhoea [Unknown]

NARRATIVE: CASE EVENT DATE: 20150522
